FAERS Safety Report 12516763 (Version 1)
Quarter: 2016Q2

REPORT INFORMATION
  Report Type: Spontaneous
  Country: CH (occurrence: CH)
  Receive Date: 20160630
  Receipt Date: 20160630
  Transmission Date: 20160815
  Serious: Yes (Hospitalization, Other)
  Sender: FDA-Public Use
  Company Number: CH-TEVA-671261ISR

PATIENT
  Age: 6 Month
  Sex: Male
  Weight: 8 kg

DRUGS (9)
  1. CARVEDILOL. [Suspect]
     Active Substance: CARVEDILOL
     Dosage: UNSPECIFIED STRENGTH
     Route: 048
     Dates: start: 20160323
  2. SODIUM HYDROGEN CARBONATE [Concomitant]
     Active Substance: SODIUM BICARBONATE
     Dosage: UNSPECIFIED STRENGTH AND DOSE
     Route: 065
  3. AMLODIPIN [Concomitant]
     Active Substance: AMLODIPINE BESYLATE
     Dosage: 4 MILLIGRAM DAILY; UNSPECIFIED STRENGTH
     Route: 048
     Dates: start: 20160323
  4. VITAMIN D [Concomitant]
     Active Substance: CHOLECALCIFEROL
     Dosage: 800 IU (INTERNATIONAL UNIT) DAILY; UNSPECIFIED STRENGTH
     Route: 048
     Dates: start: 20160323
  5. CALCITRIOL. [Concomitant]
     Active Substance: CALCITRIOL
     Dosage: UNSPECIFIED STRENGTH, 0.5 ML
     Route: 048
     Dates: start: 20160323
  6. EPREX [Suspect]
     Active Substance: ERYTHROPOIETIN
     Indication: ANAEMIA
     Dosage: UNSPECIFIED STRENGTH, 10000 IU PER WEEK
     Route: 058
     Dates: start: 20160420
  7. EPREX [Suspect]
     Active Substance: ERYTHROPOIETIN
     Dosage: UNSPECIFIED STRENGTH, 2000 IU TO 5000 IU PER WEEK
     Route: 058
     Dates: start: 20151221
  8. VENOFER [Concomitant]
     Active Substance: IRON SUCROSE
     Dosage: UNSPECIFIED STRENGTH
     Route: 042
     Dates: start: 20160420
  9. NOPIL [Suspect]
     Active Substance: SULFAMETHOXAZOLE\TRIMETHOPRIM
     Dosage: UNSPECIFIED STRENGTH, 24 MG 2 X PER DAY
     Route: 048
     Dates: start: 20160420

REACTIONS (2)
  - Disturbance in attention [Recovering/Resolving]
  - Status epilepticus [Recovering/Resolving]

NARRATIVE: CASE EVENT DATE: 20160528
